FAERS Safety Report 20469356 (Version 2)
Quarter: 2022Q1

REPORT INFORMATION
  Report Type: Spontaneous
  Country: JP (occurrence: JP)
  Receive Date: 20220214
  Receipt Date: 20220225
  Transmission Date: 20220424
  Serious: Yes (Hospitalization, Other)
  Sender: FDA-Public Use
  Company Number: JP-ASTRAZENECA-220007249_070810_P_1

PATIENT

DRUGS (1)
  1. SYNAGIS [Suspect]
     Active Substance: PALIVIZUMAB
     Indication: Product used for unknown indication
     Dosage: UNKNOWN
     Route: 030
     Dates: start: 20200820

REACTIONS (1)
  - Respiratory syncytial virus bronchiolitis [Recovering/Resolving]

NARRATIVE: CASE EVENT DATE: 20210420
